FAERS Safety Report 5092928-7 (Version None)
Quarter: 2006Q3

REPORT INFORMATION
  Report Type: 
  Country: None (occurrence: None)
  Receive Date: 20060828
  Receipt Date: 20060822
  Transmission Date: 20061208
  Serious: Yes (Hospitalization)
  Sender: FDA-Public Use
  Company Number: 060802-0000748

PATIENT
  Age: 7 Day
  Sex: Male
  Weight: 0.6759 kg

DRUGS (5)
  1. INDOMETHACIN [Suspect]
     Indication: DRUG USE FOR UNKNOWN INDICATION
     Dosage: IV
     Route: 042
     Dates: start: 20040513, end: 20040513
  2. INDOMETHACIN [Suspect]
     Indication: DRUG USE FOR UNKNOWN INDICATION
     Dosage: IV
     Route: 042
     Dates: start: 20040515, end: 20040515
  3. INDOMETHACIN [Suspect]
     Indication: DRUG USE FOR UNKNOWN INDICATION
     Dosage: IV
     Route: 042
     Dates: start: 20040517, end: 20040517
  4. INDOMETHACIN [Suspect]
     Indication: DRUG USE FOR UNKNOWN INDICATION
     Dosage: IV
     Route: 042
     Dates: start: 20040518, end: 20040518
  5. MIRACLID [Concomitant]

REACTIONS (3)
  - GASTROINTESTINAL PERFORATION [None]
  - NEONATAL DISORDER [None]
  - PERITONITIS [None]
